FAERS Safety Report 10772210 (Version 2)
Quarter: 2015Q1

REPORT INFORMATION
  Report Type: Spontaneous
  Country: FR (occurrence: FR)
  Receive Date: 20150206
  Receipt Date: 20150306
  Transmission Date: 20150721
  Serious: Yes (Death, Hospitalization)
  Sender: FDA-Public Use
  Company Number: US-ASTRAZENECA-2015SE11255

PATIENT
  Age: 3 Month
  Sex: Male
  Weight: 4.8 kg

DRUGS (7)
  1. MILRINONE [Concomitant]
     Active Substance: MILRINONE
     Indication: CONGENITAL CARDIOVASCULAR ANOMALY
     Dosage: IN CONTINUOUS
     Route: 042
  2. SUFENTANIL [Concomitant]
     Active Substance: SUFENTANIL
     Indication: SEDATION
     Dates: start: 20150106, end: 20150112
  3. ADRENALINE [Concomitant]
     Active Substance: EPINEPHRINE
     Indication: HYPOTENSION
     Dosage: IN CONTINUOUS
     Route: 042
     Dates: start: 20150106, end: 20150112
  4. NOREPINEPHRINE [Concomitant]
     Active Substance: NOREPINEPHRINE\NOREPINEPHRINE BITARTRATE
     Indication: HYPOTENSION
     Dosage: IN CONTINUOUS
     Route: 042
     Dates: start: 20150111, end: 20150112
  5. VANCOMYCINE [Concomitant]
     Active Substance: VANCOMYCIN
     Indication: INFECTION
     Dosage: IN CONTINUOUS
     Dates: start: 20150110, end: 20150112
  6. SYNAGIS [Suspect]
     Active Substance: PALIVIZUMAB
     Indication: PRODUCT USED FOR UNKNOWN INDICATION
     Route: 030
     Dates: end: 20141212
  7. FUROSEMIDE. [Concomitant]
     Active Substance: FUROSEMIDE
     Indication: OLIGURIA
     Dosage: IN CONTINUOUS
     Route: 042
     Dates: start: 20150106, end: 20150112

REACTIONS (3)
  - Respiratory syncytial virus bronchiolitis [Fatal]
  - Pulmonary arterial hypertension [Fatal]
  - Hypoxia [Fatal]

NARRATIVE: CASE EVENT DATE: 201501
